FAERS Safety Report 14913798 (Version 1)
Quarter: 2018Q2

REPORT INFORMATION
  Report Type: Spontaneous
  Country: US (occurrence: US)
  Receive Date: 20180501
  Receipt Date: 20180501
  Transmission Date: 20180711
  Serious: No
  Sender: FDA-Public Use
  Company Number: None

PATIENT
  Age: 41 Year
  Sex: Female
  Weight: 24.49 kg

DRUGS (6)
  1. CALCIUM [Concomitant]
     Active Substance: CALCIUM
  2. VITAMIN C [Concomitant]
     Active Substance: ASCORBIC ACID
  3. COLLAGEN [Concomitant]
     Active Substance: COLLAGEN
  4. MAGNESIUM [Concomitant]
     Active Substance: MAGNESIUM
  5. BIOTIN [Concomitant]
     Active Substance: BIOTIN
  6. TRI-LUMA [Suspect]
     Active Substance: FLUOCINOLONE ACETONIDE\HYDROQUINONE\TRETINOIN
     Indication: CHLOASMA
     Dosage: QUANTITY:1 DF DOSAGE FORM; ON THE SKIN, BEDTIME?
     Route: 061
     Dates: start: 20180201, end: 20180315

REACTIONS (3)
  - Disease progression [None]
  - Skin disorder [None]
  - Application site erythema [None]

NARRATIVE: CASE EVENT DATE: 20180315
